FAERS Safety Report 24270271 (Version 2)
Quarter: 2024Q3

REPORT INFORMATION
  Report Type: Report from Study
  Country: MY (occurrence: MY)
  Receive Date: 20240830
  Receipt Date: 20240911
  Transmission Date: 20241017
  Serious: Yes (Death)
  Sender: PFIZER
  Company Number: MY-PFIZER INC-PV202400113529

PATIENT
  Age: 74 Year
  Sex: Male
  Weight: 40 kg

DRUGS (1)
  1. VIZIMPRO [Suspect]
     Active Substance: DACOMITINIB
     Indication: Lung adenocarcinoma
     Dosage: 30 MG, DAILY
     Route: 048
     Dates: start: 202212, end: 20240629

REACTIONS (1)
  - Neoplasm progression [Fatal]

NARRATIVE: CASE EVENT DATE: 20240630
